FAERS Safety Report 12389420 (Version 1)
Quarter: 2016Q2

REPORT INFORMATION
  Report Type: Spontaneous
  Country: BR (occurrence: BR)
  Receive Date: 20160520
  Receipt Date: 20160520
  Transmission Date: 20160815
  Serious: Yes (Other)
  Sender: FDA-Public Use
  Company Number: BR-GLAXOSMITHKLINE-BR2016GSK069570

PATIENT
  Sex: Female

DRUGS (1)
  1. CATAFLAMPRO XT EMUGEL [Suspect]
     Active Substance: DICLOFENAC DIETHYLAMINE
     Indication: PRODUCT USED FOR UNKNOWN INDICATION
     Dosage: UNK

REACTIONS (10)
  - Scoliosis [Unknown]
  - Fibromyalgia [Unknown]
  - Concomitant disease aggravated [Unknown]
  - Osteoporosis [Unknown]
  - Arthritis [Unknown]
  - Arthralgia [Unknown]
  - Back pain [Unknown]
  - Osteoarthritis [Unknown]
  - Spinal pain [Unknown]
  - Gait disturbance [Unknown]
